FAERS Safety Report 5691370-5 (Version None)
Quarter: 2008Q2

REPORT INFORMATION
  Report Type: 
  Country: None (occurrence: None)
  Receive Date: 20080402
  Receipt Date: 20080331
  Transmission Date: 20081010
  Serious: Yes (Death, Hospitalization)
  Sender: FDA-Public Use
  Company Number: ES-BAYER-200815733GPV

PATIENT
  Age: 82 Year
  Sex: Male

DRUGS (3)
  1. NEXAVAR [Suspect]
     Indication: HEPATIC NEOPLASM MALIGNANT
     Route: 048
     Dates: start: 20071123, end: 20080120
  2. ESERTIA [Concomitant]
     Indication: DEPRESSION
     Route: 048
     Dates: start: 20050101, end: 20070101
  3. PULMICORT [Concomitant]
     Indication: BRONCHITIS
     Route: 043
     Dates: start: 20050101, end: 20070101

REACTIONS (1)
  - HEPATIC FAILURE [None]
